FAERS Safety Report 8471822-5 (Version None)
Quarter: 2012Q2

REPORT INFORMATION
  Report Type: 
  Country: None (occurrence: None)
  Receive Date: 20120621
  Receipt Date: 20120606
  Transmission Date: 20120825
  Serious: Yes (Other)
  Sender: FDA-Public Use
  Company Number: TPA2012A02696

PATIENT
  Age: 71 Year
  Sex: Male
  Weight: 77.1115 kg

DRUGS (6)
  1. COLCRYS [Suspect]
     Indication: GOUT
     Dosage: 0.6 MG, 1 IN 1 D, PER ORAL, 0.6 MG, 2 IN 1 D, PER ORAL
     Route: 048
     Dates: end: 20120503
  2. COLCRYS [Suspect]
     Indication: GOUT
     Dosage: 0.6 MG, 1 IN 1 D, PER ORAL, 0.6 MG, 2 IN 1 D, PER ORAL
     Route: 048
     Dates: start: 20120504
  3. ALLOPURINOL [Concomitant]
  4. PREDNISONE TAB [Concomitant]
  5. ULORIC [Suspect]
     Indication: GOUT
     Dosage: 80 MG, 1 IN 1 D, PER ORAL
     Route: 048
     Dates: start: 20120301
  6. FAMOTIDINE [Concomitant]

REACTIONS (5)
  - CONDITION AGGRAVATED [None]
  - GOUT [None]
  - PAIN [None]
  - PROSTATE CANCER [None]
  - INSOMNIA [None]
